FAERS Safety Report 13644872 (Version 1)
Quarter: 2017Q2

REPORT INFORMATION
  Report Type: Spontaneous
  Country: US (occurrence: US)
  Receive Date: 20170612
  Receipt Date: 20170612
  Transmission Date: 20170830
  Serious: No
  Sender: FDA-Public Use
  Company Number: US-ROCHE-1055278

PATIENT
  Sex: Male

DRUGS (1)
  1. XELODA [Suspect]
     Active Substance: CAPECITABINE
     Indication: PRODUCT USED FOR UNKNOWN INDICATION
     Route: 065

REACTIONS (8)
  - Influenza [Unknown]
  - Accident [Unknown]
  - Diarrhoea [Unknown]
  - Unevaluable event [Unknown]
  - Vomiting [Unknown]
  - Pollakiuria [Unknown]
  - Nausea [Unknown]
  - Pain [Unknown]
